FAERS Safety Report 21784941 (Version 1)
Quarter: 2022Q4

REPORT INFORMATION
  Report Type: Spontaneous
  Country: US (occurrence: None)
  Receive Date: 20221223
  Receipt Date: 20221223
  Transmission Date: 20230112
  Serious: No
  Sender: FDA-Public Use
  Company Number: None

PATIENT
  Sex: Male

DRUGS (2)
  1. DEVICE [Suspect]
     Active Substance: DEVICE
  2. TREPROSTINIL [Suspect]
     Active Substance: TREPROSTINIL
     Indication: Pulmonary arterial hypertension
     Dosage: OTHER QUANTITY : 38NG/KG/MIN;?FREQUENCY : AS DIRECTED;?
     Route: 042
     Dates: start: 20220803

REACTIONS (4)
  - Recalled product [None]
  - Dyspnoea [None]
  - Product quality issue [None]
  - Device alarm issue [None]
